FAERS Safety Report 14741269 (Version 2)
Quarter: 2018Q2

REPORT INFORMATION
  Report Type: Spontaneous
  Country: BR (occurrence: BR)
  Receive Date: 20180410
  Receipt Date: 20180423
  Transmission Date: 20180711
  Serious: Yes (Hospitalization, Other)
  Sender: FDA-Public Use
  Company Number: PHHY2018BR061036

PATIENT
  Age: 73 Year
  Sex: Female
  Weight: 96 kg

DRUGS (2)
  1. FORASEQ [Suspect]
     Active Substance: BUDESONIDE\FORMOTEROL FUMARATE
     Indication: ASTHMA
     Dosage: 3 DF, QD
     Route: 055
  2. FORASEQ [Suspect]
     Active Substance: BUDESONIDE\FORMOTEROL FUMARATE
     Indication: BRONCHITIS

REACTIONS (18)
  - Chikungunya virus infection [Unknown]
  - Blister [Unknown]
  - Diarrhoea [Unknown]
  - Pruritus [Unknown]
  - Dysstasia [Unknown]
  - Breast cancer [Unknown]
  - Headache [Unknown]
  - Dyspnoea [Unknown]
  - Malaise [Unknown]
  - Arthralgia [Unknown]
  - Disturbance in attention [Unknown]
  - Diabetes mellitus [Unknown]
  - Pulmonary mass [Unknown]
  - Pain in extremity [Unknown]
  - Vision blurred [Unknown]
  - Nail disorder [Unknown]
  - Memory impairment [Unknown]
  - Dizziness [Unknown]

NARRATIVE: CASE EVENT DATE: 201705
